FAERS Safety Report 6223540-1 (Version None)
Quarter: 2009Q2

REPORT INFORMATION
  Report Type: 
  Country: None (occurrence: None)
  Receive Date: 20090610
  Receipt Date: 20090526
  Transmission Date: 20091009
  Serious: No
  Sender: FDA-Public Use
  Company Number: SPI200900178

PATIENT
  Age: 41 Year
  Sex: Female
  Weight: 54.4 kg

DRUGS (5)
  1. AMITIZA [Suspect]
     Indication: CONSTIPATION
     Dosage: 24 MCG, BID, ORAL
     Route: 048
     Dates: start: 20090109, end: 20090519
  2. ROZEREM [Concomitant]
  3. SOMA [Concomitant]
  4. XANAX [Concomitant]
  5. PERCODAN /00090001/ (ACETYLSALICYLIC ACID, CAFFEINE, HOMATROPINE TEREP [Concomitant]

REACTIONS (3)
  - COUGH [None]
  - DYSPNOEA [None]
  - PHARYNGEAL OEDEMA [None]
